FAERS Safety Report 6376413-8 (Version None)
Quarter: 2009Q3

REPORT INFORMATION
  Report Type: 
  Country: None (occurrence: None)
  Receive Date: 20090925
  Receipt Date: 20090923
  Transmission Date: 20100115
  Serious: No
  Sender: FDA-Public Use
  Company Number: IE-JNJFOC-20090709719

PATIENT
  Sex: Male
  Weight: 81.9 kg

DRUGS (7)
  1. DURAGESIC-100 [Suspect]
     Indication: PAIN
     Route: 062
  2. ZIMOVANE [Concomitant]
     Indication: SLEEP DISORDER
     Route: 048
  3. OXYNORM [Concomitant]
     Indication: BREAKTHROUGH PAIN
     Route: 065
  4. OXYCONTIN [Concomitant]
     Indication: PAIN
     Route: 048
  5. PANTOPRAZOLE SODIUM [Concomitant]
     Indication: GASTROINTESTINAL DISORDER THERAPY
     Route: 048
  6. DUPHALAC [Concomitant]
     Indication: CONSTIPATION
     Route: 048
  7. SENOKOT [Concomitant]
     Indication: CONSTIPATION
     Route: 048

REACTIONS (2)
  - MEDICATION ERROR [None]
  - PRODUCT QUALITY ISSUE [None]
